FAERS Safety Report 4309965-X (Version None)
Quarter: 2004Q1

REPORT INFORMATION
  Report Type: 
  Country: None (occurrence: None)
  Receive Date: 20040227
  Receipt Date: 20031107
  Transmission Date: 20041129
  Serious: No
  Sender: FDA-Public Use
  Company Number: FABR-10360

PATIENT
  Age: 14 Year
  Sex: Male
  Weight: 33.8 kg

DRUGS (1)
  1. FABRAZYME [Suspect]
     Indication: FABRY'S DISEASE
     Dosage: 35 MG Q2WKS IV
     Route: 042
     Dates: start: 20030915

REACTIONS (2)
  - NAUSEA [None]
  - THROAT TIGHTNESS [None]
